FAERS Safety Report 8599119-3 (Version None)
Quarter: 2012Q3

REPORT INFORMATION
  Report Type: 
  Country: None (occurrence: None)
  Receive Date: 20120816
  Receipt Date: 20120808
  Transmission Date: 20120928
  Serious: Yes (Other)
  Sender: FDA-Public Use
  Company Number: CHPA2012US017991

PATIENT
  Age: 80 Year
  Sex: Female

DRUGS (1)
  1. BENEFIBER W/ WHEAT DEXTRIN [Suspect]
     Indication: CONSTIPATION
     Dosage: 3 TSP, TID
     Route: 048
     Dates: end: 20120701

REACTIONS (6)
  - MALAISE [None]
  - OVERDOSE [None]
  - DISEASE RECURRENCE [None]
  - DRUG INEFFECTIVE FOR UNAPPROVED INDICATION [None]
  - THERAPEUTIC RESPONSE UNEXPECTED [None]
  - INTESTINAL OBSTRUCTION [None]
